FAERS Safety Report 8302561-9 (Version None)
Quarter: 2012Q2

REPORT INFORMATION
  Report Type: 
  Country: None (occurrence: None)
  Receive Date: 20120420
  Receipt Date: 20120417
  Transmission Date: 20120825
  Serious: Yes (Hospitalization)
  Sender: FDA-Public Use
  Company Number: US-PURDUE-USA-2012-0085521

PATIENT
  Age: 92 Year
  Sex: Female

DRUGS (13)
  1. LEXAPRO [Suspect]
     Indication: DEPRESSION
  2. XANAX [Suspect]
     Indication: ANXIETY
  3. ASPIRIN [Suspect]
     Indication: PRODUCT USED FOR UNKNOWN INDICATION
  4. COLACE CAPSULES [Suspect]
     Indication: FAECES HARD
  5. MULTIVITAMIN                       /00097801/ [Suspect]
     Indication: PRODUCT USED FOR UNKNOWN INDICATION
  6. VITAMIN C                          /00008001/ [Suspect]
     Indication: PRODUCT USED FOR UNKNOWN INDICATION
  7. TENORMIN [Suspect]
     Indication: HYPERTENSION
  8. NAMENDA [Suspect]
     Indication: DEMENTIA ALZHEIMER'S TYPE
  9. CALCIUM WITH VITAMIN D             /00944201/ [Suspect]
     Indication: PRODUCT USED FOR UNKNOWN INDICATION
  10. BENICAR [Suspect]
     Indication: HYPERTENSION
  11. TRAVATAN [Suspect]
     Indication: AGE-RELATED MACULAR DEGENERATION
  12. SYNTHROID [Suspect]
     Indication: HYPOTHYROIDISM
  13. LUTEIN                             /01638501/ [Suspect]
     Indication: PRODUCT USED FOR UNKNOWN INDICATION

REACTIONS (4)
  - CONFUSIONAL STATE [None]
  - ASTHENIA [None]
  - SOMNOLENCE [None]
  - BLOOD SODIUM DECREASED [None]
